FAERS Safety Report 24131530 (Version 3)
Quarter: 2025Q1

REPORT INFORMATION
  Report Type: Report from Study
  Country: US (occurrence: US)
  Receive Date: 20240724
  Receipt Date: 20250318
  Transmission Date: 20250409
  Serious: Yes (Hospitalization)
  Sender: BAUSCH AND LOMB
  Company Number: US-BAUSCH-BL-2023-014434

PATIENT
  Age: 60 Year
  Sex: Male

DRUGS (2)
  1. SILIQ [Suspect]
     Active Substance: BRODALUMAB
     Indication: Psoriasis
     Route: 058
     Dates: start: 202309, end: 20240718
  2. SILIQ [Suspect]
     Active Substance: BRODALUMAB
     Route: 058

REACTIONS (7)
  - Surgery [Unknown]
  - Amnesia [Unknown]
  - Psoriasis [Recovering/Resolving]
  - Pain in extremity [Unknown]
  - Vomiting [Recovered/Resolved]
  - Headache [Unknown]
  - Therapy cessation [Unknown]

NARRATIVE: CASE EVENT DATE: 20230101
